FAERS Safety Report 24948502 (Version 1)
Quarter: 2025Q1

REPORT INFORMATION
  Report Type: Spontaneous
  Country: GB (occurrence: GB)
  Receive Date: 20250210
  Receipt Date: 20250210
  Transmission Date: 20250409
  Serious: Yes (Other)
  Sender: TEVA
  Company Number: None

PATIENT
  Age: 69 Year
  Sex: Female

DRUGS (1)
  1. VENLAFAXINE [Suspect]
     Active Substance: VENLAFAXINE HYDROCHLORIDE
     Indication: Adverse drug reaction
     Route: 065
     Dates: end: 20241221

REACTIONS (3)
  - Insomnia [Recovering/Resolving]
  - Affect lability [Recovered/Resolved]
  - Electric shock sensation [Recovering/Resolving]

NARRATIVE: CASE EVENT DATE: 20241221
